FAERS Safety Report 21895191 (Version 4)
Quarter: 2023Q2

REPORT INFORMATION
  Report Type: Report from Study
  Country: IN (occurrence: IN)
  Receive Date: 20230123
  Receipt Date: 20230522
  Transmission Date: 20230722
  Serious: Yes (Hospitalization)
  Sender: FDA-Public Use
  Company Number: IN-002147023-NVSC2023IN013551

PATIENT
  Age: 52 Year
  Sex: Female

DRUGS (8)
  1. ELTROMBOPAG OLAMINE [Suspect]
     Active Substance: ELTROMBOPAG OLAMINE
     Indication: Aplastic anaemia
     Dosage: 150 MG, QD
     Route: 048
     Dates: start: 20221201, end: 20221220
  2. ELTROMBOPAG OLAMINE [Suspect]
     Active Substance: ELTROMBOPAG OLAMINE
     Dosage: 150 MG, QD
     Route: 048
     Dates: start: 20230118
  3. ELTROMBOPAG OLAMINE [Suspect]
     Active Substance: ELTROMBOPAG OLAMINE
     Dosage: 150 MG, QD
     Route: 048
     Dates: start: 20230210
  4. ELTROMBOPAG OLAMINE [Suspect]
     Active Substance: ELTROMBOPAG OLAMINE
     Dosage: 100 MG, QD
     Route: 048
     Dates: start: 20230222
  5. METRONIDAZOLE [Concomitant]
     Active Substance: METRONIDAZOLE
     Indication: Product used for unknown indication
     Dosage: 500 MG, TID
     Route: 065
     Dates: start: 20230210
  6. CIPROFLOXACIN [Concomitant]
     Active Substance: CIPROFLOXACIN
     Indication: Product used for unknown indication
     Dosage: 200 MG, BID
     Route: 065
     Dates: start: 20230210
  7. CYCLOSPORINE [Concomitant]
     Active Substance: CYCLOSPORINE
     Indication: Product used for unknown indication
     Dosage: 50 MG, BID (TABLET)
     Route: 065
     Dates: start: 20221201
  8. CYCLOSPORINE [Concomitant]
     Active Substance: CYCLOSPORINE
     Dosage: 100 MG, BID
     Route: 048
     Dates: start: 20230222

REACTIONS (4)
  - Platelet count decreased [Recovering/Resolving]
  - Haemoglobin decreased [Recovering/Resolving]
  - Asthenia [Not Recovered/Not Resolved]
  - Fatigue [Not Recovered/Not Resolved]

NARRATIVE: CASE EVENT DATE: 20221220
